FAERS Safety Report 20013776 (Version 3)
Quarter: 2022Q1

REPORT INFORMATION
  Report Type: Spontaneous
  Country: GB (occurrence: GB)
  Receive Date: 20211029
  Receipt Date: 20220110
  Transmission Date: 20220423
  Serious: Yes (Life-Threatening)
  Sender: FDA-Public Use
  Company Number: None

PATIENT
  Age: 78 Year
  Sex: Male
  Weight: 88 kg

DRUGS (3)
  1. SILDENAFIL [Interacting]
     Active Substance: SILDENAFIL
     Indication: Ill-defined disorder
     Dosage: 50MG
     Route: 065
     Dates: start: 20210712
  2. IOPIDINE [Interacting]
     Active Substance: APRACLONIDINE HYDROCHLORIDE
     Dosage: 5MG/ML
     Route: 050
     Dates: start: 20210713
  3. TIMOLOL [Interacting]
     Active Substance: TIMOLOL
     Route: 050
     Dates: start: 20210713

REACTIONS (2)
  - Drug interaction [Unknown]
  - Cardiac arrest [Recovered/Resolved]

NARRATIVE: CASE EVENT DATE: 20210713
